FAERS Safety Report 6902586-1 (Version None)
Quarter: 2010Q3

REPORT INFORMATION
  Report Type: 
  Country: None (occurrence: None)
  Receive Date: 20100803
  Receipt Date: 20080604
  Transmission Date: 20110219
  Serious: No
  Sender: FDA-Public Use
  Company Number: US-PFIZER INC-2008048102

PATIENT
  Sex: Female
  Weight: 73 kg

DRUGS (3)
  1. LYRICA [Suspect]
     Indication: FIBROMYALGIA
     Route: 048
     Dates: start: 20080501
  2. CARTIA XT [Concomitant]
     Indication: BLOOD PRESSURE
     Route: 048
  3. PREVACID [Concomitant]
     Route: 048

REACTIONS (9)
  - ARTHROPATHY [None]
  - CHOKING SENSATION [None]
  - COUGH [None]
  - DYSPNOEA [None]
  - HYPOTENSION [None]
  - MUSCULAR WEAKNESS [None]
  - PAIN IN EXTREMITY [None]
  - SENSATION OF FOREIGN BODY [None]
  - TREMOR [None]
